FAERS Safety Report 4531583-9 (Version None)
Quarter: 2004Q4

REPORT INFORMATION
  Report Type: 
  Country: None (occurrence: None)
  Receive Date: 20041216
  Receipt Date: 20041201
  Transmission Date: 20050328
  Serious: No
  Sender: FDA-Public Use
  Company Number: 10066955-UNKNOWN-0

PATIENT

DRUGS (1)
  1. CEFAZOLIN [Suspect]
     Dosage: EPIDURAL
     Route: 008

REACTIONS (4)
  - CONFUSIONAL STATE [None]
  - CONVULSION [None]
  - MEDICATION ERROR [None]
  - PAIN IN EXTREMITY [None]
